FAERS Safety Report 26118131 (Version 2)
Quarter: 2025Q4

REPORT INFORMATION
  Report Type: Spontaneous
  Country: EU (occurrence: EU)
  Receive Date: 20251203
  Receipt Date: 20251210
  Transmission Date: 20260118
  Serious: Yes (Life-Threatening, Other)
  Sender: PFIZER
  Company Number: EU-PFIZER INC-PV202500139532

PATIENT
  Sex: Male

DRUGS (4)
  1. RITUXIMAB [Suspect]
     Active Substance: RITUXIMAB
     Indication: Nephrotic syndrome
     Dosage: UNK
  2. CYCLOSPORINE [Suspect]
     Active Substance: CYCLOSPORINE
     Indication: Nephrotic syndrome
     Dosage: UNK
  3. EVEROLIMUS [Suspect]
     Active Substance: EVEROLIMUS
     Indication: Nephrotic syndrome
     Dosage: UNK
  4. LOSARTAN [Suspect]
     Active Substance: LOSARTAN
     Indication: Nephrotic syndrome
     Dosage: UNK

REACTIONS (2)
  - Drug ineffective for unapproved indication [Unknown]
  - Off label use [Unknown]
